FAERS Safety Report 4820324-3 (Version None)
Quarter: 2005Q4

REPORT INFORMATION
  Report Type: 
  Country: None (occurrence: None)
  Receive Date: 20051104
  Receipt Date: 20051003
  Transmission Date: 20060501
  Serious: Yes (Other)
  Sender: FDA-Public Use
  Company Number: PHBS2005CA14751

PATIENT
  Age: 47 Year
  Sex: Female

DRUGS (2)
  1. COMBIPATCH [Suspect]
     Indication: HORMONE REPLACEMENT THERAPY
     Dosage: 50 ESTR - 140 NORE UG/DAY
     Route: 062
     Dates: start: 20050601
  2. CLONAZEPAM [Concomitant]
     Dosage: R-0.5 MG, UNK
     Dates: start: 20040401

REACTIONS (5)
  - AMNESIA [None]
  - ASTHENIA [None]
  - CONFUSIONAL STATE [None]
  - HYPOTENSION [None]
  - VAGINAL HAEMORRHAGE [None]
